FAERS Safety Report 8262054-4 (Version None)
Quarter: 2012Q2

REPORT INFORMATION
  Report Type: 
  Country: None (occurrence: None)
  Receive Date: 20120405
  Receipt Date: 20120330
  Transmission Date: 20120825
  Serious: Yes (Hospitalization, Other)
  Sender: FDA-Public Use
  Company Number: PHHY2011US61147

PATIENT
  Sex: Female

DRUGS (7)
  1. AFINITOR [Suspect]
     Indication: ASTROCYTOMA, LOW GRADE
  2. SABRIL [Concomitant]
     Dosage: UNK UKN, UNK
  3. AFINITOR [Suspect]
     Indication: TUBEROUS SCLEROSIS
     Dosage: 5 MG, DAILY
     Route: 048
     Dates: start: 20110219
  4. FELBAMATE [Concomitant]
     Dosage: UNK UKN, UNK
  5. VERSED [Concomitant]
     Dosage: UNK UKN, UNK
  6. DIASTAT [Concomitant]
     Dosage: UNK UKN, UNK
  7. BACTRIM [Concomitant]

REACTIONS (14)
  - NASAL CONGESTION [None]
  - DECREASED APPETITE [None]
  - PYREXIA [None]
  - FALL [None]
  - RHINORRHOEA [None]
  - MOUTH ULCERATION [None]
  - URINARY TRACT INFECTION [None]
  - APHAGIA [None]
  - GRAND MAL CONVULSION [None]
  - LIP INJURY [None]
  - ORAL PAIN [None]
  - COUGH [None]
  - DYSPNOEA [None]
  - HYPOPHAGIA [None]
